FAERS Safety Report 4313842-8 (Version None)
Quarter: 2004Q1

REPORT INFORMATION
  Report Type: 
  Country: None (occurrence: None)
  Receive Date: 20040308
  Receipt Date: 20031023
  Transmission Date: 20041129
  Serious: Yes (Other)
  Sender: FDA-Public Use
  Company Number: WAES 0310NLD00020

PATIENT
  Age: 49 Year

DRUGS (9)
  1. ASPIRIN CALCIUM [Concomitant]
  2. ATORVASTATIN CALCIUM [Suspect]
     Route: 048
     Dates: end: 20031029
  3. BISOPROLOL FUMARATE [Concomitant]
  4. ZETIA [Suspect]
     Indication: HYPERCHOLESTEROLAEMIA
     Route: 048
     Dates: start: 20030901, end: 20031022
  5. HYDROCHLOROTHIAZIDE [Concomitant]
  6. LEVOTHYROXINE SODIUM [Concomitant]
  7. METFORMIN [Concomitant]
     Indication: DIABETES MELLITUS NON-INSULIN-DEPENDENT
  8. PERINDOPRIL ERBUMINE [Concomitant]
  9. TOLBUTAMIDE [Concomitant]
     Indication: DIABETES MELLITUS NON-INSULIN-DEPENDENT

REACTIONS (1)
  - RHABDOMYOLYSIS [None]
